FAERS Safety Report 13182046 (Version 1)
Quarter: 2017Q1

REPORT INFORMATION
  Report Type: Spontaneous
  Country: US (occurrence: US)
  Receive Date: 20170202
  Receipt Date: 20170202
  Transmission Date: 20170428
  Serious: Yes (Hospitalization)
  Sender: FDA-Public Use
  Company Number: US-BEH-2017077725

PATIENT
  Age: 67 Year
  Sex: Female
  Weight: 122.45 kg

DRUGS (27)
  1. LEVAQUIN [Concomitant]
     Active Substance: LEVOFLOXACIN
  2. SYMBICORT [Concomitant]
     Active Substance: BUDESONIDE\FORMOTEROL FUMARATE DIHYDRATE
  3. NEXIUM [Concomitant]
     Active Substance: ESOMEPRAZOLE MAGNESIUM
  4. RISPERIDONE. [Concomitant]
     Active Substance: RISPERIDONE
  5. FUROSEMIDE. [Concomitant]
     Active Substance: FUROSEMIDE
  6. FLUTICASONE. [Concomitant]
     Active Substance: FLUTICASONE
  7. ALLOPURINOL. [Concomitant]
     Active Substance: ALLOPURINOL
  8. VITAMIN B COMPLEX [Concomitant]
     Active Substance: CYANOCOBALAMIN\DEXPANTHENOL\NIACINAMIDE\PYRIDOXINE HYDROCHLORIDE\RIBOFLAVIN 5^-PHOSPHATE SODIUM\THIAMINE HYDROCHLORIDE\VITAMIN B COMPLEX
  9. MONTELUKAST [Concomitant]
     Active Substance: MONTELUKAST SODIUM
  10. PROLIA [Concomitant]
     Active Substance: DENOSUMAB
  11. DOXYCYCLINE                        /00055702/ [Concomitant]
     Active Substance: DOXYCYCLINE
  12. LOSARTAN. [Concomitant]
     Active Substance: LOSARTAN
  13. LIPITOR [Concomitant]
     Active Substance: ATORVASTATIN CALCIUM
  14. HIZENTRA [Suspect]
     Active Substance: HUMAN IMMUNOGLOBULIN G
     Indication: IMMUNODEFICIENCY COMMON VARIABLE
     Dosage: 16 G, QOW
     Route: 058
     Dates: start: 20130620
  15. FLUCONAZOLE. [Concomitant]
     Active Substance: FLUCONAZOLE
  16. VITAMIN B12 [Concomitant]
     Active Substance: CYANOCOBALAMIN
  17. OXYBUTYNIN [Concomitant]
     Active Substance: OXYBUTYNIN
  18. CITALOPRAM [Concomitant]
     Active Substance: CITALOPRAM HYDROBROMIDE
  19. SALINE                             /00075401/ [Concomitant]
     Active Substance: SODIUM CHLORIDE
  20. ACETAMINOPHEN. [Concomitant]
     Active Substance: ACETAMINOPHEN
  21. CALCITRIOL. [Concomitant]
     Active Substance: CALCITRIOL
  22. NOVOLOG [Concomitant]
     Active Substance: INSULIN ASPART
  23. GABAPENTIN. [Concomitant]
     Active Substance: GABAPENTIN
  24. PROAIR HFA [Concomitant]
     Active Substance: ALBUTEROL SULFATE
  25. HIZENTRA [Suspect]
     Active Substance: HUMAN IMMUNOGLOBULIN G
     Dosage: UNK
     Route: 058
  26. IPRATROPIUM [Concomitant]
     Active Substance: IPRATROPIUM
  27. HYDROCODONE BITARTRATE AND ACETAMINOPHEN [Concomitant]
     Active Substance: ACETAMINOPHEN\HYDROCODONE BITARTRATE

REACTIONS (3)
  - Sciatica [Unknown]
  - Urinary retention [Unknown]
  - Back pain [Unknown]

NARRATIVE: CASE EVENT DATE: 20170116
